FAERS Safety Report 12710499 (Version 1)
Quarter: 2016Q3

REPORT INFORMATION
  Report Type: Report from Study
  Country: US (occurrence: US)
  Receive Date: 20160902
  Receipt Date: 20160902
  Transmission Date: 20161109
  Serious: Yes (Other)
  Sender: FDA-Public Use
  Company Number: US-AMGEN-USASL2016113216

PATIENT
  Age: 76 Year
  Sex: Male

DRUGS (1)
  1. REPATHA [Suspect]
     Active Substance: EVOLOCUMAB
     Indication: TYPE V HYPERLIPIDAEMIA
     Dosage: 140 MG, Q2WK
     Route: 065
     Dates: start: 201604

REACTIONS (4)
  - Fatigue [Not Recovered/Not Resolved]
  - Mental impairment [Not Recovered/Not Resolved]
  - Headache [Not Recovered/Not Resolved]
  - Bradyphrenia [Not Recovered/Not Resolved]
